FAERS Safety Report 5909572-9 (Version None)
Quarter: 2008Q4

REPORT INFORMATION
  Report Type: 
  Country: None (occurrence: None)
  Receive Date: 20081002
  Receipt Date: 20080917
  Transmission Date: 20090506
  Serious: Yes (Other)
  Sender: FDA-Public Use
  Company Number: 238927J08USA

PATIENT
  Age: 54 Year
  Sex: Female

DRUGS (6)
  1. REBIF [Suspect]
     Indication: MULTIPLE SCLEROSIS
     Dosage: 44 MCG, 3 IN 1 WEEKS, SUBCUTANEOUS
     Route: 058
     Dates: start: 20070124
  2. WELLBUTRIN [Concomitant]
  3. XANAX [Concomitant]
  4. BONIVA [Concomitant]
  5. AMBIEN [Concomitant]
  6. LUNESTA [Concomitant]

REACTIONS (1)
  - MITRAL VALVE PROLAPSE [None]
